FAERS Safety Report 10624239 (Version 1)
Quarter: 2014Q4

REPORT INFORMATION
  Report Type: Spontaneous
  Country: US (occurrence: US)
  Receive Date: 20141203
  Receipt Date: 20141203
  Transmission Date: 20150529
  Serious: No
  Sender: FDA-Public Use
  Company Number: US-SA-2014SA100721

PATIENT

DRUGS (1)
  1. RENVELA [Suspect]
     Active Substance: SEVELAMER CARBONATE
     Indication: PRODUCT USED FOR UNKNOWN INDICATION
     Dosage: 2 TO 3 TABLETS WITH EACH MEAL AND 1 TABLET WITH SNACK, RENVELA 800 MG
     Route: 048

REACTIONS (2)
  - Dyspepsia [Unknown]
  - Pruritus [Unknown]
